FAERS Safety Report 8017502-1 (Version None)
Quarter: 2011Q4

REPORT INFORMATION
  Report Type: 
  Country: None (occurrence: None)
  Receive Date: 20111228
  Receipt Date: 20111228
  Transmission Date: 20120403
  Serious: Yes (Life-Threatening, Hospitalization)
  Sender: FDA-Public Use
  Company Number: None

PATIENT
  Sex: Male
  Weight: 72.5755 kg

DRUGS (1)
  1. POTASSIUM CITRATE [Suspect]
     Indication: RENAL STONE REMOVAL
     Dosage: 9 TABS/DAY 90MEQ WAS TO BE 6 TABS @ 20 MEQ = 60 MEQ/DAY  OCT. 28 THRU NOV. 1

REACTIONS (2)
  - OVERDOSE [None]
  - DRUG DISPENSING ERROR [None]
